FAERS Safety Report 4697016-7 (Version None)
Quarter: 2005Q2

REPORT INFORMATION
  Report Type: 
  Country: None (occurrence: None)
  Receive Date: 20050620
  Receipt Date: 20050225
  Transmission Date: 20051028
  Serious: No
  Sender: FDA-Public Use
  Company Number: US-YAMANOUCHI-YPA20050141

PATIENT
  Age: 51 Year
  Sex: Female
  Weight: 62.5964 kg

DRUGS (3)
  1. VESICARE [Suspect]
     Indication: URINARY INCONTINENCE
     Dosage: 5 MG QD PO
     Route: 048
     Dates: start: 20050223
  2. XANAX [Concomitant]
  3. VICODIN [Concomitant]

REACTIONS (6)
  - AGITATION [None]
  - FATIGUE [None]
  - FEELING ABNORMAL [None]
  - INSOMNIA [None]
  - MENTAL DISORDER [None]
  - RESTLESSNESS [None]
